FAERS Safety Report 7069193-4 (Version None)
Quarter: 2010Q4

REPORT INFORMATION
  Report Type: 
  Country: None (occurrence: None)
  Receive Date: 20101028
  Receipt Date: 20101022
  Transmission Date: 20110411
  Serious: Yes (Other)
  Sender: FDA-Public Use
  Company Number: B0679269A

PATIENT
  Age: 55 Year
  Sex: Female

DRUGS (2)
  1. CEFUROXIME [Suspect]
     Indication: COUGH
     Dosage: 250MG TWICE PER DAY
     Route: 048
     Dates: start: 20100806
  2. SERETIDE [Suspect]
     Indication: COUGH
     Dosage: 250UG PER DAY
     Route: 055
     Dates: start: 20100806

REACTIONS (4)
  - PARAESTHESIA [None]
  - PARAESTHESIA ORAL [None]
  - RASH [None]
  - URTICARIA [None]
